FAERS Safety Report 10742760 (Version 5)
Quarter: 2016Q3

REPORT INFORMATION
  Report Type: Spontaneous
  Country: US (occurrence: US)
  Receive Date: 20150127
  Receipt Date: 20160714
  Transmission Date: 20161109
  Serious: Yes (Other)
  Sender: FDA-Public Use
  Company Number: US-009507513-1204USA02818

PATIENT
  Sex: Male

DRUGS (2)
  1. PROPECIA [Suspect]
     Active Substance: FINASTERIDE
     Indication: ANDROGENETIC ALOPECIA
     Dosage: UNK
     Route: 048
  2. PROPECIA [Suspect]
     Active Substance: FINASTERIDE
     Indication: ALOPECIA
     Dosage: 1 MG, QD
     Route: 048
     Dates: start: 20061102, end: 20080314

REACTIONS (17)
  - Staphylococcal infection [Recovered/Resolved]
  - Testicular failure [Unknown]
  - Weight increased [Unknown]
  - Drug ineffective [Unknown]
  - Urine flow decreased [Unknown]
  - Metabolic syndrome [Unknown]
  - Anxiety [Unknown]
  - Sexual dysfunction [Not Recovered/Not Resolved]
  - Insomnia [Not Recovered/Not Resolved]
  - Hypogonadism [Not Recovered/Not Resolved]
  - Libido decreased [Not Recovered/Not Resolved]
  - Irritability [Unknown]
  - Furuncle [Recovered/Resolved]
  - Erectile dysfunction [Recovered/Resolved]
  - Cognitive disorder [Not Recovered/Not Resolved]
  - Fatigue [Not Recovered/Not Resolved]
  - Depression [Not Recovered/Not Resolved]

NARRATIVE: CASE EVENT DATE: 20061002
